FAERS Safety Report 14831099 (Version 1)
Quarter: 2018Q2

REPORT INFORMATION
  Report Type: Spontaneous
  Country: US (occurrence: US)
  Receive Date: 20180501
  Receipt Date: 20180501
  Transmission Date: 20180711
  Serious: Yes (Other)
  Sender: FDA-Public Use
  Company Number: US-BION-007121

PATIENT
  Age: 55 Year
  Sex: Male

DRUGS (9)
  1. LIDOCAINE HYDROCHLORIDE. [Suspect]
     Active Substance: LIDOCAINE HYDROCHLORIDE
     Indication: LOCAL ANAESTHESIA
     Dosage: 4% GEL APPLIED WITH TONGUE BLADE
     Route: 061
  2. ETOMIDATE/ETOMIDATE HYDROCHLORIDE/ETOMIDATE SULFATE [Concomitant]
     Route: 042
  3. SUXAMETHONIUM [Concomitant]
     Active Substance: SUCCINYLCHOLINE
  4. AZITHROMYCIN ANHYDROUS. [Concomitant]
     Active Substance: AZITHROMYCIN ANHYDROUS
     Indication: PNEUMONIA
  5. FLUCONAZOLE. [Concomitant]
     Active Substance: FLUCONAZOLE
  6. CEFEPIME [Concomitant]
     Active Substance: CEFEPIME HYDROCHLORIDE
     Indication: PNEUMONIA
  7. PANTOPRAZOLE [Concomitant]
     Active Substance: PANTOPRAZOLE
  8. ACICLOVIR [Concomitant]
     Active Substance: ACYCLOVIR
  9. ALLOPURINOL. [Concomitant]
     Active Substance: ALLOPURINOL

REACTIONS (1)
  - Methaemoglobinaemia [Recovered/Resolved]
